FAERS Safety Report 9308657 (Version 3)
Quarter: 2013Q3

REPORT INFORMATION
  Report Type: Report from Study
  Country: AU (occurrence: AU)
  Receive Date: 20130524
  Receipt Date: 20130710
  Transmission Date: 20140515
  Serious: Yes (Other)
  Sender: FDA-Public Use
  Company Number: AU-AMGEN-AUSCT2013037107

PATIENT
  Age: 50 Year
  Sex: Female
  Weight: 73 kg

DRUGS (5)
  1. DENOSUMAB [Suspect]
     Indication: BREAST CANCER
     Dosage: 120 MG, UNK
     Route: 058
     Dates: start: 20110715
  2. PANADOL [Concomitant]
     Dosage: 1000 MG, UNK
     Route: 048
     Dates: start: 20111015
  3. ALVOGYL [Concomitant]
     Dosage: UNK
     Route: 061
     Dates: start: 20120818
  4. NUROFEN [Concomitant]
     Dosage: 400 MG, UNK
     Route: 048
  5. OSTELIN VITAMIN D + CALCIUM [Concomitant]
     Dosage: 500 UNK, UNK
     Route: 048
     Dates: start: 20110715

REACTIONS (1)
  - Osteonecrosis of jaw [Not Recovered/Not Resolved]
